FAERS Safety Report 19649774 (Version 1)
Quarter: 2021Q3

REPORT INFORMATION
  Report Type: Spontaneous
  Country: AU (occurrence: AU)
  Receive Date: 20210803
  Receipt Date: 20210803
  Transmission Date: 20211014
  Serious: Yes (Other)
  Sender: FDA-Public Use
  Company Number: AU-JNJFOC-20210755566

PATIENT

DRUGS (2)
  1. COMBANTRIN CHOCOLATE SQUARE [PYRANTEL PAMOATE] [Suspect]
     Active Substance: PYRANTEL PAMOATE
     Indication: HELMINTHIC INFECTION
     Route: 065
  2. COMBANTRIN?1 [Suspect]
     Active Substance: MEBENDAZOLE
     Indication: HELMINTHIC INFECTION
     Route: 065

REACTIONS (1)
  - Helminthic infection [Unknown]
